FAERS Safety Report 4754440-1 (Version None)
Quarter: 2005Q3

REPORT INFORMATION
  Report Type: 
  Country: None (occurrence: None)
  Receive Date: 20050829
  Receipt Date: 20050824
  Transmission Date: 20060218
  Serious: Yes (Life-Threatening, Hospitalization)
  Sender: FDA-Public Use
  Company Number: US-BOEHRINGER INGELHEIM PHARMACEUTICALS, INC.-2005-BP-14882BP

PATIENT
  Sex: Male

DRUGS (3)
  1. MOBIC [Suspect]
     Indication: RHEUMATOID ARTHRITIS
     Route: 048
  2. CELECOXIB [Suspect]
     Indication: RHEUMATOID ARTHRITIS
     Route: 048
  3. PREDNISOLONE [Suspect]

REACTIONS (4)
  - CORONARY ARTERY DISEASE [None]
  - MYOCARDIAL INFARCTION [None]
  - PULMONARY OEDEMA [None]
  - PULMONARY SEPSIS [None]
